FAERS Safety Report 6334103-1 (Version None)
Quarter: 2009Q3

REPORT INFORMATION
  Report Type: 
  Country: None (occurrence: None)
  Receive Date: 20090829
  Receipt Date: 20090722
  Transmission Date: 20100115
  Serious: No
  Sender: FDA-Public Use
  Company Number: US-ABBOTT-09P-163-0587054-00

PATIENT
  Weight: 77.18 kg

DRUGS (4)
  1. SIMCOR [Suspect]
     Indication: BLOOD CHOLESTEROL INCREASED
     Dosage: 500/20 MG
     Dates: start: 20090703, end: 20090719
  2. PREDNISONE TAB [Suspect]
     Indication: RASH
     Dates: start: 20090706, end: 20090710
  3. UNKNOWN ANTIBIOTIC [Suspect]
     Indication: RASH
     Dates: start: 20090706, end: 20090713
  4. UNKNOWN ANTIBIOTIC [Concomitant]
     Dates: start: 20090706, end: 20090713

REACTIONS (9)
  - AMNESIA [None]
  - EMOTIONAL DISORDER [None]
  - ERYTHEMA [None]
  - HOT FLUSH [None]
  - INSOMNIA [None]
  - MUSCLE SPASMS [None]
  - NEUROLOGICAL EXAMINATION ABNORMAL [None]
  - RASH [None]
  - VULVOVAGINAL PRURITUS [None]
